FAERS Safety Report 7002047-8 (Version None)
Quarter: 2010Q3

REPORT INFORMATION
  Report Type: 
  Country: None (occurrence: None)
  Receive Date: 20100917
  Receipt Date: 20100917
  Transmission Date: 20110219
  Serious: Yes (Other)
  Sender: FDA-Public Use
  Company Number: None

PATIENT
  Sex: Female
  Weight: 71.6683 kg

DRUGS (1)
  1. SEROQUEL XR [Suspect]
     Indication: DEPRESSION
     Dosage: TWO TABLETS PER DAY

REACTIONS (1)
  - WEIGHT INCREASED [None]
